FAERS Safety Report 24564531 (Version 1)
Quarter: 2024Q4

REPORT INFORMATION
  Report Type: Report from Study
  Country: CN (occurrence: CN)
  Receive Date: 20241030
  Receipt Date: 20241030
  Transmission Date: 20250115
  Serious: Yes (Other)
  Sender: ROCHE
  Company Number: CN-ROCHE-10000114305

PATIENT

DRUGS (2)
  1. VEMURAFENIB [Suspect]
     Active Substance: VEMURAFENIB
     Indication: Non-small cell lung cancer
     Route: 065
  2. OSIMERTINIB [Suspect]
     Active Substance: OSIMERTINIB
     Indication: Non-small cell lung cancer
     Route: 065

REACTIONS (25)
  - Dry mouth [Unknown]
  - Nausea [Unknown]
  - Vomiting [Unknown]
  - Rash [Unknown]
  - Decreased appetite [Unknown]
  - Diarrhoea [Unknown]
  - Paronychia [Unknown]
  - Pyrexia [Unknown]
  - Fatigue [Unknown]
  - Dysgeusia [Unknown]
  - Thrombocytopenia [Unknown]
  - Palpitations [Unknown]
  - Muscle spasms [Unknown]
  - Arthralgia [Unknown]
  - Anaemia [Unknown]
  - Gastrointestinal haemorrhage [Unknown]
  - Weight decreased [Unknown]
  - Myalgia [Unknown]
  - Dry mouth [Unknown]
  - Gamma-glutamyltransferase increased [Unknown]
  - Blood alkaline phosphatase increased [Unknown]
  - Hyponatraemia [Unknown]
  - Amylase increased [Unknown]
  - Lipase increased [Unknown]
  - Panniculitis [Unknown]
